FAERS Safety Report 4662137-1 (Version None)
Quarter: 2005Q2

REPORT INFORMATION
  Report Type: 
  Country: None (occurrence: None)
  Receive Date: 20050512
  Receipt Date: 20050428
  Transmission Date: 20051028
  Serious: Yes (Hospitalization, Disabling)
  Sender: FDA-Public Use
  Company Number: MK200504-0361-1

PATIENT
  Age: 36 Year
  Sex: Female

DRUGS (4)
  1. ANAFRANIL [Suspect]
     Indication: OBSESSIVE-COMPULSIVE DISORDER
     Dosage: 25-37.5 MG, Q D, PO
     Route: 048
     Dates: start: 19990527, end: 19990607
  2. ZOLOFT [Concomitant]
  3. TRAZODONE [Concomitant]
  4. AMYTRIPTYLINE [Concomitant]

REACTIONS (12)
  - ANXIETY [None]
  - APPETITE DISORDER [None]
  - ASTHENIA [None]
  - DEHYDROEPIANDROSTERONE INCREASED [None]
  - DIZZINESS [None]
  - DRUG INEFFECTIVE [None]
  - HIRSUTISM [None]
  - HYPERPHAGIA [None]
  - HYPOTHALAMO-PITUITARY DISORDERS [None]
  - SUICIDAL IDEATION [None]
  - TREMOR [None]
  - WEIGHT INCREASED [None]
